FAERS Safety Report 8251371-X (Version None)
Quarter: 2012Q2

REPORT INFORMATION
  Report Type: 
  Country: None (occurrence: None)
  Receive Date: 20120402
  Receipt Date: 20120323
  Transmission Date: 20120825
  Serious: Yes (Hospitalization)
  Sender: FDA-Public Use
  Company Number: FR-GLAXOSMITHKLINE-B0792474A

PATIENT
  Sex: Male
  Weight: 59 kg

DRUGS (1)
  1. VOTRIENT [Suspect]
     Indication: DERMATOFIBROSARCOMA
     Route: 065

REACTIONS (4)
  - HEADACHE [None]
  - ABDOMINAL PAIN [None]
  - ASTHENIA [None]
  - PRURIGO [None]
